FAERS Safety Report 4552199-4 (Version None)
Quarter: 2004Q4

REPORT INFORMATION
  Report Type: 
  Country: None (occurrence: None)
  Receive Date: 20041217
  Receipt Date: 20040830
  Transmission Date: 20050328
  Serious: No
  Sender: FDA-Public Use
  Company Number: 2004-BP-0624BP

PATIENT
  Age: 64 Year
  Sex: Male

DRUGS (7)
  1. SPIRIVA [Suspect]
     Indication: CHRONIC OBSTRUCTIVE AIRWAYS DISEASE
     Dosage: 18 MCG (18 MCG),IH
     Dates: start: 20040723
  2. SPIRIVA [Suspect]
  3. PULMICORT [Concomitant]
  4. ALBUTEROL [Concomitant]
  5. DIAZIDE (GLICLAZIDE) [Concomitant]
  6. DILTIAZEM [Concomitant]
  7. XANAX [Concomitant]

REACTIONS (1)
  - DYSPNOEA [None]
